FAERS Safety Report 9089143 (Version 1)
Quarter: 2013Q1

REPORT INFORMATION
  Report Type: Spontaneous
  Country: MX (occurrence: MX)
  Receive Date: 20130201
  Receipt Date: 20130201
  Transmission Date: 20140127
  Serious: Yes (Other)
  Sender: FDA-Public Use
  Company Number: PHHY2013MX008604

PATIENT
  Age: 85 Year
  Sex: Female

DRUGS (2)
  1. CO-DIOVAN [Suspect]
     Indication: HYPERTENSION
     Dosage: 1 DF(160/12.5 MG), DAILY
     Dates: start: 201209, end: 201209
  2. NORVAS [Concomitant]

REACTIONS (5)
  - Carotid arteriosclerosis [Not Recovered/Not Resolved]
  - Thyroid neoplasm [Not Recovered/Not Resolved]
  - Blood sodium decreased [Not Recovered/Not Resolved]
  - Hypoxia [Not Recovered/Not Resolved]
  - Syncope [Not Recovered/Not Resolved]
